FAERS Safety Report 18108086 (Version 1)
Quarter: 2020Q3

REPORT INFORMATION
  Report Type: Spontaneous
  Country: US (occurrence: US)
  Receive Date: 20200803
  Receipt Date: 20200803
  Transmission Date: 20201103
  Serious: Yes (Hospitalization, Other)
  Sender: FDA-Public Use
  Company Number: US-PURDUE-USA-2020-0160199

PATIENT
  Age: 61 Year
  Sex: Female

DRUGS (17)
  1. TRAZODONE [Concomitant]
     Active Substance: TRAZODONE HYDROCHLORIDE
     Indication: PRODUCT USED FOR UNKNOWN INDICATION
     Dosage: 50 MG, HS
     Route: 048
  2. OXYCONTIN [Suspect]
     Active Substance: OXYCODONE HYDROCHLORIDE
     Indication: PAIN
     Dosage: 30 MG, Q4H PRN
     Route: 048
  3. OXYCODONE HCL TABLETS (RHODES 91?490) [Suspect]
     Active Substance: OXYCODONE HYDROCHLORIDE
     Indication: PAIN
     Dosage: 30 MG, 5/DAY
     Route: 048
     Dates: start: 2012
  4. NORCO [Suspect]
     Active Substance: ACETAMINOPHEN\HYDROCODONE BITARTRATE
     Dosage: 5?325 MG, Q4H PRN
     Route: 048
  5. MORPHINE SULFATE EXTENDED?RELEASE TABLETS (RHODES 74?769, 74?862) [Suspect]
     Active Substance: MORPHINE SULFATE
     Indication: PAIN
     Dosage: 15 MG, NOCTE PRN
     Route: 048
  6. GABAPENTIN. [Concomitant]
     Active Substance: GABAPENTIN
     Indication: PAIN
     Dosage: 300 MG, Q8H
     Route: 048
  7. OXYIR [Suspect]
     Active Substance: OXYCODONE HYDROCHLORIDE
     Indication: PAIN
     Dosage: UNKNOWN
     Route: 065
  8. POTASSIUM CHLORIDE. [Concomitant]
     Active Substance: POTASSIUM CHLORIDE
     Indication: PRODUCT USED FOR UNKNOWN INDICATION
     Dosage: 20 MEQ, DAILY
     Route: 048
  9. MS CONTIN [Suspect]
     Active Substance: MORPHINE SULFATE
     Indication: PAIN
     Dosage: UNKNOWN
     Route: 048
  10. OXYCODONE/ ACETAMINOPHEN TABLETS [Suspect]
     Active Substance: ACETAMINOPHEN\OXYCODONE HYDROCHLORIDE
     Indication: PRODUCT USED FOR UNKNOWN INDICATION
     Dosage: UNKNOWN
     Route: 048
  11. HYDROCODONE BITARTRATE AND ACETAMINOPHEN [Suspect]
     Active Substance: ACETAMINOPHEN\HYDROCODONE BITARTRATE
     Indication: PRODUCT USED FOR UNKNOWN INDICATION
     Dosage: UNKNOWN
     Route: 048
  12. GABAPENTIN. [Concomitant]
     Active Substance: GABAPENTIN
     Dosage: 100 MG, UNK
     Route: 065
  13. LASIX [Concomitant]
     Active Substance: FUROSEMIDE
     Indication: PRODUCT USED FOR UNKNOWN INDICATION
     Dosage: 20 MG, DAILY PRN
     Route: 048
  14. NORCO [Suspect]
     Active Substance: ACETAMINOPHEN\HYDROCODONE BITARTRATE
     Indication: PAIN
     Dosage: 10?325 MG, TID
     Route: 048
  15. FENTANYL. [Suspect]
     Active Substance: FENTANYL
     Indication: PAIN
     Dosage: 50 MCG, UNK
     Route: 065
  16. TRAZODONE [Concomitant]
     Active Substance: TRAZODONE HYDROCHLORIDE
     Dosage: 100 MG, HS
     Route: 065
  17. MSIR [Suspect]
     Active Substance: MORPHINE SULFATE
     Indication: PAIN
     Dosage: UNKNOWN
     Route: 065

REACTIONS (43)
  - Alcoholism [Unknown]
  - Sinusitis [Unknown]
  - Dyspnoea [Unknown]
  - Confusional state [Recovered/Resolved]
  - Lethargy [Unknown]
  - Emphysema [Unknown]
  - Delirium [Recovered/Resolved]
  - Hypokalaemia [Recovered/Resolved]
  - Arthralgia [Unknown]
  - Neck pain [Unknown]
  - Back pain [Unknown]
  - Nausea [Unknown]
  - Muscle twitching [Unknown]
  - Drug dependence [Unknown]
  - Depression [Unknown]
  - Influenza [Recovering/Resolving]
  - Loss of consciousness [Recovered/Resolved]
  - Asthenia [Unknown]
  - Decreased appetite [Unknown]
  - Balance disorder [Unknown]
  - Accidental overdose [Recovered/Resolved]
  - Encephalopathy [Recovered/Resolved]
  - Dysarthria [Unknown]
  - Diarrhoea [Unknown]
  - Anxiety [Unknown]
  - Hypoxia [Recovered/Resolved]
  - Cough [Unknown]
  - Feeling guilty [Unknown]
  - Dysphoria [Unknown]
  - Acute respiratory failure [Recovered/Resolved]
  - Chest pain [Unknown]
  - Intervertebral disc degeneration [Unknown]
  - Pain [Unknown]
  - Impaired self-care [Unknown]
  - Insomnia [Unknown]
  - Disturbance in attention [Unknown]
  - Pneumonia streptococcal [Recovering/Resolving]
  - Agitation [Unknown]
  - Leukocytosis [Unknown]
  - Fibromyalgia [Unknown]
  - Abdominal pain [Unknown]
  - Headache [Unknown]
  - Anhedonia [Unknown]

NARRATIVE: CASE EVENT DATE: 20140606
